FAERS Safety Report 9277901 (Version 2)
Quarter: 2013Q2

REPORT INFORMATION
  Report Type: Spontaneous
  Country: US (occurrence: US)
  Receive Date: 20130508
  Receipt Date: 20130605
  Transmission Date: 20140414
  Serious: Yes (Hospitalization, Other)
  Sender: FDA-Public Use
  Company Number: PHEH2013US009880

PATIENT
  Age: 58 Year
  Sex: Female

DRUGS (1)
  1. RECLAST [Suspect]
     Dosage: UNK UKN, UNK
     Route: 042
     Dates: start: 20110926

REACTIONS (23)
  - Eye disorder [Unknown]
  - Iritis [Unknown]
  - Eye irritation [Unknown]
  - Cataract [Unknown]
  - Vision blurred [Unknown]
  - Altered visual depth perception [Unknown]
  - Road traffic accident [Unknown]
  - Renal mass [Unknown]
  - Uveitis [Unknown]
  - Visual acuity reduced [Unknown]
  - Blindness transient [Recovering/Resolving]
  - Movement disorder [Unknown]
  - Back disorder [Unknown]
  - Hernia [Unknown]
  - Dysuria [Unknown]
  - Mood altered [Unknown]
  - Anxiety [Unknown]
  - Back pain [Unknown]
  - Chills [Unknown]
  - Headache [Unknown]
  - Constipation [Unknown]
  - Bowel movement irregularity [Recovering/Resolving]
  - Pain [Unknown]
